FAERS Safety Report 20345248 (Version 1)
Quarter: 2022Q1

REPORT INFORMATION
  Report Type: Spontaneous
  Country: US (occurrence: None)
  Receive Date: 20220114
  Receipt Date: 20220114
  Transmission Date: 20220424
  Serious: No
  Sender: FDA-Public Use
  Company Number: None

PATIENT
  Age: 41 Year
  Sex: Female
  Weight: 101.25 kg

DRUGS (1)
  1. DOXYCYCLINE [Suspect]
     Active Substance: DOXYCYCLINE
     Indication: Sinusitis
     Dosage: OTHER QUANTITY : 1 CAPSULE(S);?FREQUENCY : TWICE A DAY;?
     Route: 048
     Dates: start: 20211230, end: 20220111

REACTIONS (19)
  - Arthralgia [None]
  - Hypoaesthesia [None]
  - Musculoskeletal stiffness [None]
  - Arthropathy [None]
  - Arthralgia [None]
  - Arthralgia [None]
  - Muscular weakness [None]
  - Feeling abnormal [None]
  - Arthralgia [None]
  - Arthralgia [None]
  - Asthenia [None]
  - Myalgia [None]
  - Throat irritation [None]
  - Dysphagia [None]
  - Balance disorder [None]
  - Headache [None]
  - Paraesthesia [None]
  - Skin burning sensation [None]
  - Dysuria [None]

NARRATIVE: CASE EVENT DATE: 20220108
